FAERS Safety Report 4714643-9 (Version None)
Quarter: 2005Q3

REPORT INFORMATION
  Report Type: 
  Country: None (occurrence: None)
  Receive Date: 20050712
  Receipt Date: 20050628
  Transmission Date: 20060218
  Serious: Yes (Other)
  Sender: FDA-Public Use
  Company Number: 214582

PATIENT
  Age: 60 Year
  Sex: Male
  Weight: 48 kg

DRUGS (10)
  1. RITUXAN [Suspect]
     Indication: NON-HODGKIN'S LYMPHOMA
     Dosage: 560 MG, UNK, IV DRIP
     Route: 041
     Dates: start: 20020201, end: 20020402
  2. MITOXANTRONE [Suspect]
     Indication: NON-HODGKIN'S LYMPHOMA
     Dosage: 12 MG, UNK, IV DRIP
     Route: 041
     Dates: start: 20020202, end: 20020202
  3. ETOPOSIDE [Suspect]
     Indication: NON-HODGKIN'S LYMPHOMA
     Dosage: 200 MG, UNK, IV DRIP
     Route: 041
     Dates: start: 20020202, end: 20020206
  4. CARBOPLATIN [Suspect]
     Indication: NON-HODGKIN'S LYMPHOMA
     Dosage: 450 MG, UNK, IV DRIP
     Route: 041
     Dates: start: 20020202, end: 20020202
  5. PREDONINE (PREDNISOLONE, PREDNISOLONE ACETATE, PREDNISOLONE SODIUM SUC [Concomitant]
  6. IBUPROFEN [Concomitant]
  7. POLARAMINE [Concomitant]
  8. FLUDARA [Concomitant]
  9. MITOXANTRONE [Concomitant]
  10. DEXAMETHASONE [Concomitant]

REACTIONS (1)
  - PANCYTOPENIA [None]
